FAERS Safety Report 9486126 (Version 4)
Quarter: 2013Q4

REPORT INFORMATION
  Report Type: Spontaneous
  Country: AT (occurrence: AT)
  Receive Date: 20130829
  Receipt Date: 20131204
  Transmission Date: 20140711
  Serious: Yes (Life-Threatening, Hospitalization, Other)
  Sender: FDA-Public Use
  Company Number: AT-ELI_LILLY_AND_COMPANY-AT201308008346

PATIENT
  Sex: Male
  Weight: 85 kg

DRUGS (13)
  1. PRASUGREL HYDROCHLORIDE [Suspect]
     Indication: STENT PLACEMENT
     Dosage: 60 MG, SINGLE
     Dates: start: 20110225, end: 20110225
  2. PRASUGREL HYDROCHLORIDE [Suspect]
     Dosage: 10 MG, QD
     Dates: start: 20110226, end: 20110601
  3. ASS [Concomitant]
  4. LOVENOX [Concomitant]
  5. PANTOPRAZOL [Concomitant]
  6. AMLODIBENE [Concomitant]
  7. ATACAND [Concomitant]
  8. LASIX [Concomitant]
  9. UROSIN [Concomitant]
  10. DIBONDRIN [Concomitant]
  11. DOMINAL FORTE [Concomitant]
  12. DIABETEX [Concomitant]
  13. EXCIPIAL                           /00481901/ [Concomitant]

REACTIONS (5)
  - Subdural haematoma [Recovered/Resolved]
  - Skull fracture [Recovered/Resolved]
  - Injury [Recovering/Resolving]
  - Fall [Unknown]
  - Loss of consciousness [Recovered/Resolved]
